FAERS Safety Report 5126778-X (Version None)
Quarter: 2006Q4

REPORT INFORMATION
  Report Type: 
  Country: None (occurrence: None)
  Receive Date: 20061011
  Receipt Date: 20061011
  Transmission Date: 20070319
  Serious: Yes (Hospitalization, Disabling, Other)
  Sender: FDA-Public Use
  Company Number: None

PATIENT
  Age: 4 Year
  Sex: Female
  Weight: 20 kg

DRUGS (1)
  1. ENBREL [Suspect]
     Indication: JUVENILE ARTHRITIS
     Dosage: .3ML   B.I.W.   SQ
     Route: 058
     Dates: start: 20060715, end: 20060907

REACTIONS (5)
  - BLOOD THYROID STIMULATING HORMONE INCREASED [None]
  - INJECTION SITE RASH [None]
  - PERIPHERAL COLDNESS [None]
  - RASH MACULO-PAPULAR [None]
  - SYSTEMIC LUPUS ERYTHEMATOSUS [None]
